FAERS Safety Report 7749321-5 (Version None)
Quarter: 2011Q3

REPORT INFORMATION
  Report Type: 
  Country: None (occurrence: None)
  Receive Date: 20110914
  Receipt Date: 20100802
  Transmission Date: 20111222
  Serious: No
  Sender: FDA-Public Use
  Company Number: US-BAYER-201029934NA

PATIENT
  Age: 27 Year
  Sex: Female

DRUGS (1)
  1. MIRENA [Suspect]
     Indication: CONTRACEPTION
     Dosage: 20 ?G, CONT
     Route: 015
     Dates: start: 20050801

REACTIONS (5)
  - AMENORRHOEA [None]
  - NAUSEA [None]
  - BREAST TENDERNESS [None]
  - VOMITING [None]
  - ABDOMINAL PAIN LOWER [None]
